FAERS Safety Report 17559026 (Version 1)
Quarter: 2020Q1

REPORT INFORMATION
  Report Type: Spontaneous
  Country: US (occurrence: US)
  Receive Date: 20200311
  Receipt Date: 20200311
  Transmission Date: 20200409
  Serious: Yes (Hospitalization)
  Sender: FDA-Public Use
  Company Number: None

PATIENT
  Sex: Female

DRUGS (36)
  1. TAFINLAR [Suspect]
     Active Substance: DABRAFENIB MESYLATE
     Indication: THYROID CANCER
     Route: 048
     Dates: start: 20180918
  2. HYDROCO/APAP [Concomitant]
     Active Substance: ACETAMINOPHEN\HYDROCODONE
  3. SOD CHLORIDE [Concomitant]
  4. FEROSUL [Concomitant]
     Active Substance: FERROUS SULFATE
  5. METHYLPRED [Concomitant]
     Active Substance: METHYLPREDNISOLONE
  6. PANTOPRAZOLE [Concomitant]
     Active Substance: PANTOPRAZOLE
  7. ACETAMIN [Concomitant]
     Active Substance: ACETAMINOPHEN
  8. AZITHROMYCIN ANHYDROUS. [Concomitant]
     Active Substance: AZITHROMYCIN ANHYDROUS
  9. BENZONATATE. [Concomitant]
     Active Substance: BENZONATATE
  10. CIPROFLOXACN [Concomitant]
     Active Substance: CIPROFLOXACIN
  11. ONDANSETRON [Concomitant]
     Active Substance: ONDANSETRON
  12. TACROLIMUS. [Concomitant]
     Active Substance: TACROLIMUS
  13. ALBUTEROL NEB [Concomitant]
     Active Substance: ALBUTEROL
  14. OLANZAPINE. [Concomitant]
     Active Substance: OLANZAPINE
  15. OSELTAMVIR [Concomitant]
     Active Substance: OSELTAMIVIR
  16. PILOCARPINE. [Concomitant]
     Active Substance: PILOCARPINE
  17. DOXYCYCL HYC [Concomitant]
  18. GABAPENTIN. [Concomitant]
     Active Substance: GABAPENTIN
  19. LOSARTAN POT [Concomitant]
     Active Substance: LOSARTAN POTASSIUM
  20. PROMETHAZINE [Concomitant]
     Active Substance: PROMETHAZINE HYDROCHLORIDE
  21. TRESIBA FLEX [Concomitant]
  22. MEKINIST [Suspect]
     Active Substance: TRAMETINIB DIMETHYL SULFOXIDE
     Indication: THYROID CANCER
     Route: 048
     Dates: start: 20180918
  23. FLOVENT HFA AER [Concomitant]
  24. FLUTICASONE. [Concomitant]
     Active Substance: FLUTICASONE
  25. INSULIN SYRG MIS [Concomitant]
  26. LEVOTHYROXIN [Concomitant]
     Active Substance: LEVOTHYROXINE
  27. MONTELUKAST [Concomitant]
     Active Substance: MONTELUKAST SODIUM
  28. MULTI-VITAMIN [Concomitant]
     Active Substance: .ALPHA.-TOCOPHEROL ACETATE, DL-\ASCORBIC ACID\CYANOCOBALAMIN\FLUORIDE ION\FOLIC ACID\NIACIN\PYRIDOXINE\RIBOFLAVIN\THIAMINE\VITAMIN A\VITAMIN D
  29. VENTOLIN HFA AER [Concomitant]
  30. HYDRALAZINE [Concomitant]
     Active Substance: HYDRALAZINE HYDROCHLORIDE
  31. OMEPRAZOLE. [Concomitant]
     Active Substance: OMEPRAZOLE
  32. TRIAMCINOLON CRE [Concomitant]
  33. ATORVASTATIN [Concomitant]
     Active Substance: ATORVASTATIN
  34. HUMALOG [Concomitant]
     Active Substance: INSULIN LISPRO
  35. LOPERAMIDE [Concomitant]
     Active Substance: LOPERAMIDE
  36. TRAMADOL HCL [Concomitant]
     Active Substance: TRAMADOL HYDROCHLORIDE

REACTIONS (2)
  - Blood sodium decreased [None]
  - Rash [None]
